FAERS Safety Report 24333138 (Version 1)
Quarter: 2024Q3

REPORT INFORMATION
  Report Type: Spontaneous
  Country: EG (occurrence: EG)
  Receive Date: 20240918
  Receipt Date: 20240918
  Transmission Date: 20241017
  Serious: Yes (Other)
  Sender: HIKMA
  Company Number: EG-HIKMA PHARMACEUTICALS-EG-H14001-24-08494

PATIENT
  Age: 59 Year
  Sex: Male
  Weight: 45 kg

DRUGS (6)
  1. GEMZAR [Suspect]
     Active Substance: GEMCITABINE HYDROCHLORIDE
     Indication: Bladder cancer
     Dosage: 1500 MILLIGRAM, 4W
     Route: 041
  2. GEMZAR [Suspect]
     Active Substance: GEMCITABINE HYDROCHLORIDE
     Dosage: 1500 MILLIGRAM, 4W, DAY 1
     Route: 041
     Dates: start: 20240820
  3. GEMZAR [Suspect]
     Active Substance: GEMCITABINE HYDROCHLORIDE
     Dosage: 1500 MILLIGRAM, 4W, DAY 8
     Route: 041
     Dates: start: 20240828
  4. CISPLATIN [Suspect]
     Active Substance: CISPLATIN
     Indication: Bladder cancer
     Dosage: 90 MILLIGRAM, 4W
     Route: 041
  5. CISPLATIN [Suspect]
     Active Substance: CISPLATIN
     Dosage: 90 MILLIGRAM, 4W, DAY 1
     Route: 041
     Dates: start: 20240820
  6. CISPLATIN [Suspect]
     Active Substance: CISPLATIN
     Dosage: 90 MILLIGRAM, 4W, DAY 8
     Route: 041
     Dates: start: 20240828

REACTIONS (2)
  - White blood cell disorder [Unknown]
  - Neutrophil count abnormal [Unknown]

NARRATIVE: CASE EVENT DATE: 20240904
